FAERS Safety Report 23667301 (Version 3)
Quarter: 2024Q2

REPORT INFORMATION
  Report Type: Spontaneous
  Country: JP (occurrence: JP)
  Receive Date: 20240325
  Receipt Date: 20240610
  Transmission Date: 20240715
  Serious: Yes (Other)
  Sender: FDA-Public Use
  Company Number: JP-MSD-M2024-10801

PATIENT
  Age: 45 Year
  Sex: Female
  Weight: 86 kg

DRUGS (5)
  1. KEYTRUDA [Suspect]
     Active Substance: PEMBROLIZUMAB
     Indication: Triple negative breast cancer
     Dosage: 200 MILLIGRAM, Q3W
     Route: 041
     Dates: start: 20240110
  2. CARBOPLATIN [Suspect]
     Active Substance: CARBOPLATIN
     Indication: Triple negative breast cancer
     Dosage: 225 MILLIGRAM/BODY, QW
     Route: 041
     Dates: start: 20240110, end: 20240221
  3. CARBOPLATIN [Suspect]
     Active Substance: CARBOPLATIN
     Dosage: 225 MILLIGRAM/BODY, QW
     Route: 041
     Dates: start: 20240313, end: 20240430
  4. PACLITAXEL [Suspect]
     Active Substance: PACLITAXEL
     Indication: Triple negative breast cancer
     Dosage: 151 MILLIGRAM/BODY, QW
     Route: 041
     Dates: start: 20240110, end: 20240221
  5. PACLITAXEL [Suspect]
     Active Substance: PACLITAXEL
     Dosage: 151 MILLIGRAM/BODY, QW
     Route: 041
     Dates: start: 20240313, end: 20240430

REACTIONS (1)
  - Neutropenia [Recovered/Resolved]

NARRATIVE: CASE EVENT DATE: 20240228
